FAERS Safety Report 10228257 (Version 2)
Quarter: 2014Q3

REPORT INFORMATION
  Report Type: Spontaneous
  Country: US (occurrence: US)
  Receive Date: 20140610
  Receipt Date: 20140902
  Transmission Date: 20150326
  Serious: Yes (Other)
  Sender: FDA-Public Use
  Company Number: US-BAYER-2014-083662

PATIENT
  Age: 30 Year
  Sex: Female

DRUGS (4)
  1. YASMIN [Suspect]
     Active Substance: DROSPIRENONE\ETHINYL ESTRADIOL
     Indication: CONTRACEPTION
  2. YASMIN [Suspect]
     Active Substance: DROSPIRENONE\ETHINYL ESTRADIOL
     Indication: PREMENSTRUAL SYNDROME
     Dosage: UNK
     Dates: start: 2005, end: 2007
  3. OCELLA [Suspect]
     Active Substance: DROSPIRENONE\ETHINYL ESTRADIOL
     Indication: CONTRACEPTION
  4. OCELLA [Suspect]
     Active Substance: DROSPIRENONE\ETHINYL ESTRADIOL
     Indication: PREMENSTRUAL SYNDROME

REACTIONS (15)
  - Deep vein thrombosis [None]
  - Pain [None]
  - Drug ineffective [None]
  - Haemorrhage [None]
  - Cerebrovascular accident [None]
  - Injury [None]
  - Emotional distress [None]
  - Premenstrual syndrome [None]
  - Menstrual disorder [None]
  - Thrombosis [None]
  - Depression [None]
  - Suicidal ideation [None]
  - Cardiac disorder [None]
  - Infertility female [None]
  - General physical health deterioration [None]

NARRATIVE: CASE EVENT DATE: 200606
